FAERS Safety Report 10050912 (Version 2)
Quarter: 2014Q2

REPORT INFORMATION
  Report Type: Report from Study
  Country: US (occurrence: US)
  Receive Date: 20140401
  Receipt Date: 20140520
  Transmission Date: 20141212
  Serious: Yes (Other)
  Sender: FDA-Public Use
  Company Number: US-ALEXION PHARMACEUTICALS INC.-A201400970

PATIENT
  Sex: 0

DRUGS (4)
  1. SOLIRIS [Suspect]
     Indication: PAROXYSMAL NOCTURNAL HAEMOGLOBINURIA
     Dosage: 900 MG, Q2W
     Route: 042
     Dates: start: 20080717
  2. ARANESP [Concomitant]
     Indication: ERYTHROPOIESIS ABNORMAL
     Dosage: UNK
     Route: 065
     Dates: start: 20081020
  3. B12                                /00056201/ [Concomitant]
     Indication: PRODUCT USED FOR UNKNOWN INDICATION
     Dosage: UNK
     Route: 065
     Dates: start: 20081020
  4. DESFERAL [Concomitant]
     Indication: PRODUCT USED FOR UNKNOWN INDICATION
     Dosage: UNK
     Route: 065
     Dates: start: 20081111

REACTIONS (5)
  - Mammogram abnormal [Not Recovered/Not Resolved]
  - Breast cyst [Not Recovered/Not Resolved]
  - Haemoglobin decreased [Unknown]
  - Rhinorrhoea [Not Recovered/Not Resolved]
  - Urinary tract infection [Unknown]
